FAERS Safety Report 5078513-1 (Version None)
Quarter: 2006Q3

REPORT INFORMATION
  Report Type: 
  Country: None (occurrence: None)
  Receive Date: 20060808
  Receipt Date: 20060731
  Transmission Date: 20061208
  Serious: No
  Sender: FDA-Public Use
  Company Number: 2006BI006866

PATIENT
  Age: 39 Year
  Sex: Male
  Weight: 108.8633 kg

DRUGS (2)
  1. AVONEX [Suspect]
     Indication: MULTIPLE SCLEROSIS
     Dosage: 30 UG; QW; IM
     Route: 030
     Dates: start: 20000101, end: 20010101
  2. HUMULIN 70/30 [Concomitant]

REACTIONS (2)
  - FATIGUE [None]
  - RENAL TRANSPLANT [None]
